FAERS Safety Report 9092374 (Version 1)
Quarter: 2013Q1

REPORT INFORMATION
  Report Type: Spontaneous
  Country: US (occurrence: US)
  Receive Date: 20130218
  Receipt Date: 20130218
  Transmission Date: 20140127
  Serious: No
  Sender: FDA-Public Use
  Company Number: US-ABBOTT-12P-163-1006375-00

PATIENT
  Sex: Male
  Weight: 72.19 kg

DRUGS (4)
  1. SIMCOR 500/20 [Suspect]
     Indication: BLOOD CHOLESTEROL INCREASED
     Dosage: 500/20
     Dates: start: 201208
  2. SINGULAIR [Concomitant]
     Indication: ASTHMA
  3. MELOXICAM [Concomitant]
     Indication: SARCOIDOSIS
  4. HYDROCODONE [Concomitant]
     Indication: PAIN

REACTIONS (2)
  - Flushing [Not Recovered/Not Resolved]
  - Burning sensation [Recovered/Resolved]
